FAERS Safety Report 22365528 (Version 3)
Quarter: 2023Q2

REPORT INFORMATION
  Report Type: Report from Study
  Country: US (occurrence: US)
  Receive Date: 20230525
  Receipt Date: 20230613
  Transmission Date: 20230721
  Serious: Yes (Hospitalization, Other)
  Sender: FDA-Public Use
  Company Number: US-ABBVIE-5177859

PATIENT
  Age: 82 Year
  Sex: Female

DRUGS (1)
  1. HUMIRA [Suspect]
     Active Substance: ADALIMUMAB
     Indication: Rheumatoid arthritis
     Dosage: CITRATE FREE
     Route: 058
     Dates: start: 20221006

REACTIONS (13)
  - Hiatus hernia [Unknown]
  - Dehydration [Recovering/Resolving]
  - Faeces soft [Unknown]
  - Hypertension [Recovering/Resolving]
  - Disturbance in attention [Recovering/Resolving]
  - Anal incontinence [Unknown]
  - Inflammation [Unknown]
  - Headache [Recovered/Resolved]
  - Diarrhoea [Unknown]
  - Brain fog [Recovering/Resolving]
  - Headache [Recovered/Resolved]
  - Faecal volume increased [Unknown]
  - Device issue [Unknown]

NARRATIVE: CASE EVENT DATE: 20230517
